FAERS Safety Report 10340803 (Version 2)
Quarter: 2015Q1

REPORT INFORMATION
  Report Type: Spontaneous
  Country: FR (occurrence: FR)
  Receive Date: 20140724
  Receipt Date: 20150226
  Transmission Date: 20150720
  Serious: Yes (Other)
  Sender: FDA-Public Use
  Company Number: PHHY2014FR088777

PATIENT
  Age: 39 Year
  Sex: Male

DRUGS (7)
  1. ATROPINE [Suspect]
     Active Substance: ATROPINE
     Indication: GENERAL ANAESTHESIA
     Dosage: UNK
     Route: 042
     Dates: start: 20140626, end: 20140626
  2. MORPHINE [Suspect]
     Active Substance: MORPHINE
     Indication: GENERAL ANAESTHESIA
     Route: 042
     Dates: start: 20140626, end: 20140626
  3. ATRACURIUM HOSPIRA [Suspect]
     Active Substance: ATRACURIUM
     Indication: GENERAL ANAESTHESIA
     Route: 042
     Dates: start: 20140626, end: 20140626
  4. ULTIVA [Suspect]
     Active Substance: REMIFENTANIL HYDROCHLORIDE
     Indication: GENERAL ANAESTHESIA
     Route: 042
     Dates: start: 20140626, end: 20140626
  5. VANCOMYCIN SANDOZ [Suspect]
     Active Substance: VANCOMYCIN
     Indication: GENERAL ANAESTHESIA
     Route: 042
     Dates: start: 20140626, end: 20140626
  6. DIPRIVAN [Suspect]
     Active Substance: PROPOFOL
     Indication: GENERAL ANAESTHESIA
     Route: 042
     Dates: start: 20140626, end: 20140626
  7. PARACETAMOL [Suspect]
     Active Substance: ACETAMINOPHEN
     Indication: GENERAL ANAESTHESIA
     Dosage: UNK
     Route: 042
     Dates: start: 20140626, end: 20140626

REACTIONS (1)
  - Urticaria [Recovered/Resolved]

NARRATIVE: CASE EVENT DATE: 20140627
